FAERS Safety Report 17238701 (Version 1)
Quarter: 2020Q1

REPORT INFORMATION
  Report Type: Spontaneous
  Country: US (occurrence: US)
  Receive Date: 20200105
  Receipt Date: 20200105
  Transmission Date: 20200409
  Serious: Yes (Life-Threatening, Hospitalization)
  Sender: FDA-Public Use
  Company Number: None

PATIENT
  Age: 45 Year
  Sex: Female
  Weight: 58.5 kg

DRUGS (3)
  1. ALAVERT ALLERGY [Concomitant]
     Active Substance: LORATADINE
  2. HUMIRA [Suspect]
     Active Substance: ADALIMUMAB
     Indication: PSORIATIC ARTHROPATHY
     Dates: start: 20191220, end: 20191220
  3. WOMENS MULTIVITAMIN [Concomitant]

REACTIONS (4)
  - Anaphylactoid reaction [None]
  - Drug hypersensitivity [None]
  - Arthralgia [None]
  - Hypoxia [None]

NARRATIVE: CASE EVENT DATE: 20200103
